FAERS Safety Report 7159106-9 (Version None)
Quarter: 2010Q4

REPORT INFORMATION
  Report Type: 
  Country: None (occurrence: None)
  Receive Date: 20101214
  Receipt Date: 20101203
  Transmission Date: 20110411
  Serious: Yes (Other)
  Sender: FDA-Public Use
  Company Number: US-SANOFI-AVENTIS-2010SA073893

PATIENT
  Age: 51 Year
  Sex: Male

DRUGS (2)
  1. LANTUS [Suspect]
     Dosage: AROUND 29 UNITS EVERY AM AND PM
     Route: 058
     Dates: start: 20090101
  2. LANTUS [Suspect]
     Dates: start: 20090101

REACTIONS (3)
  - BLINDNESS [None]
  - BLOOD GLUCOSE INCREASED [None]
  - TOE AMPUTATION [None]
